FAERS Safety Report 26061832 (Version 1)
Quarter: 2025Q4

REPORT INFORMATION
  Report Type: Report from Study
  Country: CA (occurrence: CA)
  Receive Date: 20251118
  Receipt Date: 20251118
  Transmission Date: 20260118
  Serious: Yes (Death)
  Sender: ABBVIE
  Company Number: CA-ABBVIE-6553633

PATIENT
  Age: 40 Year
  Sex: Female

DRUGS (2)
  1. VENETOCLAX [Suspect]
     Active Substance: VENETOCLAX
     Indication: Primary mediastinal large B-cell lymphoma
     Route: 048
  2. AZACITIDINE [Suspect]
     Active Substance: AZACITIDINE
     Indication: Primary mediastinal large B-cell lymphoma
     Route: 065

REACTIONS (3)
  - Respiratory failure [Fatal]
  - Drug ineffective [Unknown]
  - Drug ineffective [Unknown]
